FAERS Safety Report 7421820-5 (Version None)
Quarter: 2011Q2

REPORT INFORMATION
  Report Type: 
  Country: None (occurrence: None)
  Receive Date: 20110418
  Receipt Date: 20110411
  Transmission Date: 20111010
  Serious: Yes (Other)
  Sender: FDA-Public Use
  Company Number: US-B.I. PHARMACEUTICALS,INC./RIDGEFIELD-2011-BP-00908BP

PATIENT
  Age: 52 Year
  Sex: Male

DRUGS (5)
  1. HYDROCHLOROTHIAZIDE [Concomitant]
     Indication: BLOOD PRESSURE
  2. VIRAMUNE [Suspect]
     Indication: HIV INFECTION
     Dosage: 400 MG
     Route: 048
     Dates: start: 20050101, end: 20101201
  3. TRUVADA [Concomitant]
     Indication: HIV INFECTION
  4. ASPIRIN [Concomitant]
     Indication: PROPHYLAXIS
  5. ISENTRESS [Concomitant]

REACTIONS (5)
  - HEPATIC NEOPLASM [None]
  - VIRAL LOAD INCREASED [None]
  - MALIGNANT MELANOMA STAGE IV [None]
  - HEPATIC NEOPLASM MALIGNANT [None]
  - METASTASES TO LIVER [None]
